FAERS Safety Report 4987008-2 (Version None)
Quarter: 2006Q2

REPORT INFORMATION
  Report Type: 
  Country: None (occurrence: None)
  Receive Date: 20060427
  Receipt Date: 20060427
  Transmission Date: 20061013
  Serious: Yes (Hospitalization)
  Sender: FDA-Public Use
  Company Number: None

PATIENT
  Sex: Female
  Weight: 39.2 kg

DRUGS (10)
  1. EXJADE [Suspect]
     Indication: HAEMOSIDEROSIS
     Dosage: 1000 MG   ONCE DAILY   PO
     Route: 048
  2. HYDROXYUREA [Concomitant]
  3. FOLIC ACID [Concomitant]
  4. KEPPRA [Concomitant]
  5. VASOTEC [Concomitant]
  6. LASIX [Concomitant]
  7. SYNTHROID [Concomitant]
  8. PREMARIN [Concomitant]
  9. ASCORBIC ACID [Concomitant]
  10. TOPROL-XL [Concomitant]

REACTIONS (6)
  - CHROMATURIA [None]
  - FATIGUE [None]
  - HYPERKALAEMIA [None]
  - OEDEMA PERIPHERAL [None]
  - ORAL INTAKE REDUCED [None]
  - RENAL FAILURE ACUTE [None]
